FAERS Safety Report 9594855 (Version 1)
Quarter: 2013Q3

REPORT INFORMATION
  Report Type: Spontaneous
  Country: US (occurrence: None)
  Receive Date: 20130927
  Receipt Date: 20130927
  Transmission Date: 20140515
  Serious: Yes (Other)
  Sender: FDA-Public Use
  Company Number: 2013030106

PATIENT
  Age: 65 Year
  Sex: Male

DRUGS (1)
  1. FELBATOL [Suspect]
     Route: 048
     Dates: start: 2013

REACTIONS (3)
  - Drug withdrawal convulsions [None]
  - Injury [None]
  - Incorrect dose administered [None]
